FAERS Safety Report 4368828-4 (Version None)
Quarter: 2004Q2

REPORT INFORMATION
  Report Type: 
  Country: None (occurrence: None)
  Receive Date: 20040528
  Receipt Date: 20040526
  Transmission Date: 20050107
  Serious: Yes (Death)
  Sender: FDA-Public Use
  Company Number: MK200405-0013-2

PATIENT
  Age: 45 Year
  Sex: Female

DRUGS (2)
  1. METHADOSE [Suspect]
     Route: 048
     Dates: start: 20030613
  2. ALPRAZOLAM [Suspect]
     Dates: start: 20030613

REACTIONS (1)
  - ACCIDENTAL OVERDOSE [None]
